FAERS Safety Report 8838785 (Version 1)
Quarter: 2012Q4

REPORT INFORMATION
  Report Type: 
  Country: MX (occurrence: MX)
  Receive Date: 20121014
  Receipt Date: 20121014
  Transmission Date: 20130627
  Serious: Yes (Hospitalization)
  Sender: FDA-Public Use
  Company Number: PHHY2012MX090627

PATIENT
  Sex: Female

DRUGS (3)
  1. EXFORGE HCT [Suspect]
     Indication: HYPERTENSION
     Dosage: 1 DF (160/5/12.5 mg) daily
     Dates: start: 20101213, end: 20120507
  2. INDOMETACIN [Concomitant]
     Indication: ARTHRALGIA
     Dosage: 25 mg daily
     Dates: start: 201207
  3. METICORTEN [Concomitant]
     Indication: RHEUMATOID ARTHRITIS
     Dosage: 1 tablet daily
     Dates: start: 201207

REACTIONS (8)
  - Pulmonary fibrosis [Unknown]
  - Pneumonia [Unknown]
  - Herpes virus infection [Unknown]
  - Gastric mucosal lesion [Unknown]
  - Oral mucosal blistering [Recovered/Resolved with Sequelae]
  - Aphagia [Unknown]
  - Dysphagia [Unknown]
  - Gait disturbance [Unknown]
